FAERS Safety Report 4633256-0 (Version None)
Quarter: 2005Q2

REPORT INFORMATION
  Report Type: 
  Country: None (occurrence: None)
  Receive Date: 20050408
  Receipt Date: 20050329
  Transmission Date: 20051028
  Serious: Yes (Hospitalization, Disabling)
  Sender: FDA-Public Use
  Company Number: 2005AP01987

PATIENT
  Age: 57 Year
  Sex: Female

DRUGS (4)
  1. IRESSA [Suspect]
     Indication: LUNG ADENOCARCINOMA
     Dosage: 250 MG DAILY PO
     Route: 048
     Dates: start: 20031110, end: 20050328
  2. RABEPRAZOLE SODIUM [Concomitant]
  3. ALFAROL [Concomitant]
  4. BENET [Concomitant]

REACTIONS (4)
  - ARTERIAL THROMBOSIS [None]
  - DEEP VEIN THROMBOSIS [None]
  - DISSEMINATED INTRAVASCULAR COAGULATION [None]
  - NEOPLASM MALIGNANT [None]
